FAERS Safety Report 7786703-X (Version None)
Quarter: 2011Q3

REPORT INFORMATION
  Report Type: 
  Country: None (occurrence: None)
  Receive Date: 20110929
  Receipt Date: 20110926
  Transmission Date: 20111222
  Serious: Yes (Other)
  Sender: FDA-Public Use
  Company Number: US-PFIZER INC-2011228805

PATIENT
  Age: 59 Year
  Sex: Female
  Weight: 50.34 kg

DRUGS (2)
  1. MENTHOL/METHYL SALICYLATE [Suspect]
     Indication: PAIN IN EXTREMITY
     Dosage: QUARTER SIZE ON EACH ARM ONCE DAILY FOR ABOUT 3-4 DAYS
     Route: 061
     Dates: start: 20110801, end: 20110806
  2. IBUPROFEN (ADVIL) [Suspect]
     Indication: PAIN IN EXTREMITY
     Dosage: 2 TABLETS
     Dates: start: 20110806

REACTIONS (6)
  - ANAPHYLACTIC SHOCK [None]
  - LOSS OF CONSCIOUSNESS [None]
  - HYPERHIDROSIS [None]
  - URINARY INCONTINENCE [None]
  - PRURITUS GENERALISED [None]
  - RESPIRATORY ARREST [None]
